FAERS Safety Report 10579664 (Version 1)
Quarter: 2014Q4

REPORT INFORMATION
  Report Type: Spontaneous
  Country: US (occurrence: US)
  Receive Date: 20141112
  Receipt Date: 20141112
  Transmission Date: 20150529
  Serious: Yes (Death, Hospitalization)
  Sender: FDA-Public Use
  Company Number: US-TEVA-521045USA

PATIENT
  Age: 78 Year
  Sex: Female

DRUGS (1)
  1. ACTIQ [Suspect]
     Active Substance: FENTANYL CITRATE

REACTIONS (8)
  - Traumatic lung injury [Unknown]
  - Death [Fatal]
  - Somnolence [Unknown]
  - Lung infection [Unknown]
  - Atrial fibrillation [Unknown]
  - Gastrointestinal sounds abnormal [Unknown]
  - Respiratory failure [Unknown]
  - Urine output decreased [Unknown]

NARRATIVE: CASE EVENT DATE: 20140324
